FAERS Safety Report 15205858 (Version 2)
Quarter: 2018Q3

REPORT INFORMATION
  Report Type: Spontaneous
  Country: US (occurrence: US)
  Receive Date: 20180727
  Receipt Date: 20180730
  Transmission Date: 20181010
  Serious: Yes (Hospitalization)
  Sender: FDA-Public Use
  Company Number: US-STRIDES ARCOLAB LIMITED-2018SP006221

PATIENT

DRUGS (1)
  1. OSELTAMIVIR [Suspect]
     Active Substance: OSELTAMIVIR
     Indication: INFLUENZA LIKE ILLNESS
     Dosage: UNK
     Route: 065

REACTIONS (12)
  - Stevens-Johnson syndrome [Unknown]
  - Condition aggravated [Unknown]
  - Ventilation perfusion mismatch [Recovered/Resolved]
  - Obliterative bronchiolitis [Unknown]
  - Bronchiectasis [Unknown]
  - Respiratory distress [Unknown]
  - Hypoxia [Unknown]
  - Respiratory failure [Unknown]
  - Dyspnoea [Unknown]
  - Tongue exfoliation [Unknown]
  - Cough [Unknown]
  - Papule [Unknown]
